FAERS Safety Report 19225542 (Version 1)
Quarter: 2021Q2

REPORT INFORMATION
  Report Type: Spontaneous
  Country: US (occurrence: US)
  Receive Date: 20210506
  Receipt Date: 20210506
  Transmission Date: 20210717
  Serious: No
  Sender: FDA-Public Use
  Company Number: US-MYLANLABS-2021M1024135

PATIENT
  Sex: Male

DRUGS (1)
  1. ACICLOVIR [Suspect]
     Active Substance: ACYCLOVIR
     Indication: BLISTER
     Dosage: 5 PERCENT

REACTIONS (4)
  - Product use in unapproved indication [Unknown]
  - Product use issue [Unknown]
  - Liquid product physical issue [Unknown]
  - Product quality issue [Unknown]
